FAERS Safety Report 6279557-4 (Version None)
Quarter: 2009Q3

REPORT INFORMATION
  Report Type: 
  Country: None (occurrence: None)
  Receive Date: 20090723
  Receipt Date: 20090717
  Transmission Date: 20100115
  Serious: Yes (Other)
  Sender: FDA-Public Use
  Company Number: A0779994A

PATIENT
  Age: 51 Year
  Sex: Male

DRUGS (1)
  1. VERAMYST [Suspect]
     Indication: DRUG USE FOR UNKNOWN INDICATION
     Route: 065

REACTIONS (7)
  - BLINDNESS [None]
  - CATARACT [None]
  - CATARACT CORTICAL [None]
  - CATARACT NUCLEAR [None]
  - CATARACT OPERATION [None]
  - CATARACT SUBCAPSULAR [None]
  - VISION BLURRED [None]
